FAERS Safety Report 4607346-2 (Version None)
Quarter: 2005Q1

REPORT INFORMATION
  Report Type: 
  Country: None (occurrence: None)
  Receive Date: 20050309
  Receipt Date: 20050224
  Transmission Date: 20050727
  Serious: Yes (Life-Threatening, Hospitalization)
  Sender: FDA-Public Use
  Company Number: HQWYE703230NOV04

PATIENT
  Age: 49 Year
  Sex: Male

DRUGS (10)
  1. RAPAMUNE [Suspect]
     Indication: PROPHYLAXIS AGAINST TRANSPLANT REJECTION
     Dosage: SEE IMAGE
     Route: 048
     Dates: start: 19980925, end: 20030704
  2. RAPAMUNE [Suspect]
     Indication: PROPHYLAXIS AGAINST TRANSPLANT REJECTION
     Dosage: SEE IMAGE
     Route: 048
     Dates: start: 20030705
  3. ZEFFIX (LAMIVUDINE) [Concomitant]
  4. PREDNISONE [Concomitant]
  5. MYCOPHENOLATE MOFETIL (MYCOPHENOLATE MOFETIL) [Concomitant]
  6. TENDORMINE  (ATENOLOL) [Concomitant]
  7. LASILIX (FUROSEMIDE) [Concomitant]
  8. ZOCOR [Concomitant]
  9. GLYBURIDE [Concomitant]
  10. AMLOR (AMLODIPINE BESILATE) [Concomitant]

REACTIONS (1)
  - GLIOBLASTOMA [None]
